FAERS Safety Report 10149073 (Version 4)
Quarter: 2014Q4

REPORT INFORMATION
  Report Type: Report from Study
  Country: US (occurrence: US)
  Receive Date: 20140502
  Receipt Date: 20141212
  Transmission Date: 20150528
  Serious: Yes (Hospitalization, Other)
  Sender: FDA-Public Use
  Company Number: US-ALEXION PHARMACEUTICALS INC.-A201401525

PATIENT

DRUGS (1)
  1. SOLIRIS [Suspect]
     Active Substance: ECULIZUMAB
     Indication: PAROXYSMAL NOCTURNAL HAEMOGLOBINURIA
     Dosage: 1200 MG, QW
     Route: 042
     Dates: start: 20110929

REACTIONS (5)
  - Splenectomy [Unknown]
  - Pharyngitis [Unknown]
  - Bacterial infection [Recovering/Resolving]
  - Bone marrow transplant [Unknown]
  - Overdose [Unknown]

NARRATIVE: CASE EVENT DATE: 20141203
